FAERS Safety Report 5409055-9 (Version None)
Quarter: 2007Q3

REPORT INFORMATION
  Report Type: 
  Country: None (occurrence: None)
  Receive Date: 20070806
  Receipt Date: 20070806
  Transmission Date: 20080115
  Serious: Yes (Other)
  Sender: FDA-Public Use
  Company Number: NL-1163702

PATIENT
  Weight: 13 kg

DRUGS (2)
  1. MIOSTAT(CARBACHOL) 0.001% INJECTION [Suspect]
     Dosage: 0.5 AMPOULE INTRAOCULAR SOLUTION FOR INJECTION
     Route: 031
  2. NEOSTIGMINE(NEOSTIGMINE) [Concomitant]

REACTIONS (2)
  - BRADYCARDIA [None]
  - WRONG TECHNIQUE IN DRUG USAGE PROCESS [None]
